FAERS Safety Report 7396489-9 (Version None)
Quarter: 2011Q2

REPORT INFORMATION
  Report Type: 
  Country: None (occurrence: None)
  Receive Date: 20110406
  Receipt Date: 20110307
  Transmission Date: 20111010
  Serious: Yes (Hospitalization, Other)
  Sender: FDA-Public Use
  Company Number: US-BAYER-2010-007085

PATIENT
  Sex: Female
  Weight: 119.27 kg

DRUGS (1)
  1. YASMIN [Suspect]
     Indication: PRODUCT USED FOR UNKNOWN INDICATION
     Dosage: UNK
     Dates: start: 20010101

REACTIONS (3)
  - GALLBLADDER DISORDER [None]
  - PAIN [None]
  - CHOLECYSTITIS [None]
